FAERS Safety Report 22103320 (Version 1)
Quarter: 2023Q1

REPORT INFORMATION
  Report Type: Spontaneous
  Country: CN (occurrence: CN)
  Receive Date: 20230316
  Receipt Date: 20230316
  Transmission Date: 20230418
  Serious: Yes (Other)
  Sender: FDA-Public Use
  Company Number: CN-PFIZER INC-PV202300047414

PATIENT
  Age: 25 Year
  Sex: Female
  Weight: 52.9 kg

DRUGS (4)
  1. TYGACIL [Suspect]
     Active Substance: TIGECYCLINE
     Indication: Pneumonia
     Dosage: 100 MG, 1X/DAY
     Route: 041
     Dates: start: 20230226, end: 20230226
  2. TYGACIL [Suspect]
     Active Substance: TIGECYCLINE
     Dosage: 50 MG, 2X/DAY
     Route: 041
     Dates: start: 20230226, end: 20230306
  3. SODIUM CHLORIDE [Concomitant]
     Active Substance: SODIUM CHLORIDE
     Indication: Vehicle solution use
     Dosage: 250 ML, 1X/DAY
     Route: 041
     Dates: start: 20230226, end: 20230226
  4. SODIUM CHLORIDE [Concomitant]
     Active Substance: SODIUM CHLORIDE
     Indication: Vehicle solution use
     Dosage: 100 ML, 2X/DAY
     Route: 041
     Dates: start: 20230226, end: 20230306

REACTIONS (3)
  - Coagulopathy [Recovering/Resolving]
  - Prothrombin time prolonged [Recovering/Resolving]
  - Activated partial thromboplastin time prolonged [Recovering/Resolving]

NARRATIVE: CASE EVENT DATE: 20230228
